FAERS Safety Report 9242044 (Version 1)
Quarter: 2013Q2

REPORT INFORMATION
  Report Type: Spontaneous
  Country: US (occurrence: US)
  Receive Date: 20130419
  Receipt Date: 20130419
  Transmission Date: 20140414
  Serious: No
  Sender: FDA-Public Use
  Company Number: US-BAYER-2013-047837

PATIENT
  Age: 92 Year
  Sex: Female
  Weight: 46.26 kg

DRUGS (2)
  1. ALEVE CAPLET [Suspect]
     Dosage: UNK
     Route: 048
  2. XANAX [Concomitant]

REACTIONS (2)
  - Throat irritation [Recovered/Resolved]
  - Vomiting [Recovered/Resolved]
